FAERS Safety Report 5224953-7 (Version None)
Quarter: 2007Q1

REPORT INFORMATION
  Report Type: 
  Country: None (occurrence: None)
  Receive Date: 20070126
  Receipt Date: 20070116
  Transmission Date: 20070707
  Serious: Yes (Hospitalization)
  Sender: FDA-Public Use
  Company Number: B0455026A

PATIENT
  Age: 36 Year
  Sex: Male
  Weight: 139.7079 kg

DRUGS (1)
  1. LITHIUM CARBONATE [Suspect]
     Indication: BIPOLAR DISORDER

REACTIONS (12)
  - ASTHENIA [None]
  - BLOOD SODIUM INCREASED [None]
  - DEHYDRATION [None]
  - DRUG TOXICITY [None]
  - HAEMODIALYSIS [None]
  - HYPOVOLAEMIA [None]
  - MUCOSAL DRYNESS [None]
  - NEPHRITIS INTERSTITIAL [None]
  - POLYURIA [None]
  - RENAL FAILURE ACUTE [None]
  - SKIN TURGOR DECREASED [None]
  - THIRST [None]
